FAERS Safety Report 19247738 (Version 3)
Quarter: 2024Q2

REPORT INFORMATION
  Report Type: Spontaneous
  Country: US (occurrence: US)
  Receive Date: 20210512
  Receipt Date: 20240402
  Transmission Date: 20240716
  Serious: Yes (Other)
  Sender: FDA-Public Use
  Company Number: US-SAOL THERAPEUTICS-2021SAO00166

PATIENT
  Age: 17 Year
  Sex: Male
  Weight: 34.014 kg

DRUGS (5)
  1. BACLOFEN [Suspect]
     Active Substance: BACLOFEN
     Indication: Muscle spasticity
     Dosage: 570 ?G, \DAY
     Route: 037
     Dates: end: 2021
  2. BACLOFEN [Suspect]
     Active Substance: BACLOFEN
     Indication: Cerebral palsy
     Dosage: UNK, ^MIN RATE^
     Route: 037
     Dates: start: 2021, end: 2021
  3. BACLOFEN [Suspect]
     Active Substance: BACLOFEN
     Dosage: UNK, ^INCREASED DOSE^
     Route: 037
     Dates: start: 2021
  4. BACLOFEN [Suspect]
     Active Substance: BACLOFEN
     Dosage: 800.1 MICROGRAM, QD
  5. BUPIVACAINE [Concomitant]
     Active Substance: BUPIVACAINE
     Indication: Product used for unknown indication
     Dosage: 0.800 MILLIGRAM (2.0 MG/ML), QD
     Route: 037

REACTIONS (6)
  - Spinal fusion surgery [Recovered/Resolved]
  - SARS-CoV-2 test positive [Recovered/Resolved]
  - Complication associated with device [Not Recovered/Not Resolved]
  - Device failure [Unknown]
  - Therapeutic product effect incomplete [Not Recovered/Not Resolved]
  - Drug withdrawal syndrome [Recovered/Resolved]

NARRATIVE: CASE EVENT DATE: 20220113
